FAERS Safety Report 6554957-3 (Version None)
Quarter: 2010Q1

REPORT INFORMATION
  Report Type: 
  Country: None (occurrence: None)
  Receive Date: 20100126
  Receipt Date: 20100126
  Transmission Date: 20100710
  Serious: Yes (Hospitalization)
  Sender: FDA-Public Use
  Company Number: None

PATIENT
  Age: 62 Year
  Sex: Female
  Weight: 156.3 kg

DRUGS (2)
  1. PACLITAXEL [Suspect]
     Indication: NON-SMALL CELL LUNG CANCER STAGE IIIA
     Dosage: 358MG ONCE IV DRIP
     Route: 041
     Dates: start: 20090506, end: 20090729
  2. CARBOPLATIN [Suspect]
     Indication: NON-SMALL CELL LUNG CANCER STAGE IIIA
     Dosage: 738MG ONCE IV DRIP
     Route: 041

REACTIONS (15)
  - ANAEMIA [None]
  - ATELECTASIS [None]
  - DYSPNOEA [None]
  - FATIGUE [None]
  - GASTROINTESTINAL HAEMORRHAGE [None]
  - HYPOXIA [None]
  - KLEBSIELLA INFECTION [None]
  - MALAISE [None]
  - OEDEMA PERIPHERAL [None]
  - OESOPHAGEAL ULCER [None]
  - PLEURAL EFFUSION [None]
  - PNEUMONIA [None]
  - RADIATION PNEUMONITIS [None]
  - SPUTUM DISCOLOURED [None]
  - SPUTUM PURULENT [None]
